FAERS Safety Report 4585785-6 (Version None)
Quarter: 2005Q1

REPORT INFORMATION
  Report Type: 
  Country: None (occurrence: None)
  Receive Date: 20050125
  Receipt Date: 20040921
  Transmission Date: 20050727
  Serious: No
  Sender: FDA-Public Use
  Company Number: USA040978887

PATIENT
  Age: 71 Year
  Sex: Female
  Weight: 49 kg

DRUGS (3)
  1. FORTEO [Suspect]
     Dosage: 20 UG/1 DAY
     Dates: start: 20040601
  2. CALCIUM GLUCONATE [Concomitant]
  3. MULTI-VITAMIN [Concomitant]

REACTIONS (1)
  - SPINAL DEFORMITY [None]
